FAERS Safety Report 24344421 (Version 1)
Quarter: 2024Q3

REPORT INFORMATION
  Report Type: Spontaneous
  Country: US (occurrence: US)
  Receive Date: 20240920
  Receipt Date: 20240920
  Transmission Date: 20241017
  Serious: No
  Sender: AMGEN
  Company Number: US-AMGEN-USASP2024183920

PATIENT
  Age: 62 Year
  Sex: Female
  Weight: 36.281 kg

DRUGS (2)
  1. EVENITY [Suspect]
     Active Substance: ROMOSOZUMAB-AQQG
     Indication: Bone disorder
     Dosage: 210 MILLIGRAM, QMO
     Route: 058
     Dates: start: 20240723, end: 20240723
  2. EVENITY [Suspect]
     Active Substance: ROMOSOZUMAB-AQQG
     Indication: Off label use

REACTIONS (14)
  - Discomfort [Recovering/Resolving]
  - Fibromyalgia [Recovering/Resolving]
  - Toothache [Recovering/Resolving]
  - Migraine [Recovering/Resolving]
  - Osteopenia [Recovering/Resolving]
  - Dysphagia [Recovering/Resolving]
  - Pain in jaw [Recovering/Resolving]
  - Back pain [Recovering/Resolving]
  - Asthenia [Recovering/Resolving]
  - Disturbance in attention [Recovering/Resolving]
  - Off label use [Unknown]
  - Oropharyngeal pain [Recovering/Resolving]
  - Musculoskeletal chest pain [Recovering/Resolving]
  - Arthralgia [Recovering/Resolving]

NARRATIVE: CASE EVENT DATE: 20240101
